FAERS Safety Report 25299994 (Version 1)
Quarter: 2025Q2

REPORT INFORMATION
  Report Type: Spontaneous
  Country: KR (occurrence: KR)
  Receive Date: 20250512
  Receipt Date: 20250512
  Transmission Date: 20250717
  Serious: Yes (Other)
  Sender: AMGEN
  Company Number: MY-AMGEN-KORSP2025087555

PATIENT

DRUGS (1)
  1. ETANERCEPT [Suspect]
     Active Substance: ETANERCEPT
     Indication: Rheumatoid arthritis
     Route: 065

REACTIONS (34)
  - Lymphatic disorder [Unknown]
  - Adverse event [Unknown]
  - Herpes zoster [Unknown]
  - Respiratory tract infection [Unknown]
  - Neoplasm malignant [Unknown]
  - Cardiac arrest [Unknown]
  - Angina pectoris [Unknown]
  - Chest pain [Unknown]
  - Arrhythmia [Unknown]
  - Hypertension [Unknown]
  - Gastrointestinal disorder [Unknown]
  - Palpitations [Unknown]
  - Skin disorder [Unknown]
  - Blood disorder [Unknown]
  - Cardiac disorder [Unknown]
  - Endocrine disorder [Unknown]
  - Eye disorder [Unknown]
  - Hepatobiliary disorder prophylaxis [Unknown]
  - Infection [Unknown]
  - Infestation [Unknown]
  - Injury [Unknown]
  - Poisoning [Unknown]
  - Procedural complication [Unknown]
  - Nutritional condition abnormal [Unknown]
  - Musculoskeletal disorder [Unknown]
  - Neoplasm [Unknown]
  - Nervous system disorder [Unknown]
  - Renal disorder [Unknown]
  - Urinary tract disorder [Unknown]
  - Reproductive system disorder prophylaxis [Unknown]
  - Breast disorder [Unknown]
  - Respiratory disorder [Unknown]
  - Mediastinal disorder [Unknown]
  - Drug ineffective [Unknown]
